FAERS Safety Report 11415979 (Version 1)
Quarter: 2015Q3

REPORT INFORMATION
  Report Type: Spontaneous
  Country: JP (occurrence: JP)
  Receive Date: 20150825
  Receipt Date: 20150825
  Transmission Date: 20151125
  Serious: Yes (Hospitalization, Other)
  Sender: FDA-Public Use
  Company Number: JP-GLAXOSMITHKLINE INC.-JP2015JPN096563

PATIENT
  Age: 35 Year
  Sex: Female
  Weight: 48 kg

DRUGS (6)
  1. CHAMPIX [Suspect]
     Active Substance: VARENICLINE TARTRATE
     Indication: NICOTINE DEPENDENCE
     Dosage: 0.5 MG, QD
     Route: 048
     Dates: start: 20150516, end: 20150518
  2. LAMICTAL [Suspect]
     Active Substance: LAMOTRIGINE
     Dosage: 150 MG, QD
     Route: 048
  3. HOKUNALIN [Suspect]
     Active Substance: TULOBUTEROL
     Indication: COUGH
     Dosage: UNK
     Route: 065
     Dates: start: 20150520, end: 20150520
  4. ZYPREXA [Suspect]
     Active Substance: OLANZAPINE
     Dosage: 7.5 MG, QD
     Route: 048
  5. U-PAN [Suspect]
     Active Substance: LORAZEPAM
     Dosage: 0.5 MG, BID
     Route: 048
  6. JZOLOFT [Suspect]
     Active Substance: SERTRALINE HYDROCHLORIDE
     Indication: DEPRESSION
     Dosage: 75 MG, QD
     Route: 048

REACTIONS (5)
  - Tremor [Recovered/Resolved]
  - Suicidal behaviour [Recovered/Resolved]
  - Suicidal ideation [Recovered/Resolved]
  - Cough [Unknown]
  - Drug hypersensitivity [Unknown]

NARRATIVE: CASE EVENT DATE: 2015
